FAERS Safety Report 5267142-2 (Version None)
Quarter: 2007Q1

REPORT INFORMATION
  Report Type: 
  Country: None (occurrence: None)
  Receive Date: 20070316
  Receipt Date: 20070305
  Transmission Date: 20070707
  Serious: Yes (Hospitalization, Other)
  Sender: FDA-Public Use
  Company Number: PHHO2007PH02618

PATIENT
  Age: 56 Year
  Sex: Male
  Weight: 71.6 kg

DRUGS (7)
  1. GLEEVEC [Suspect]
     Indication: GASTROINTESTINAL STROMAL TUMOUR
     Dosage: 400 MG, QD
     Route: 048
     Dates: start: 20061122, end: 20061213
  2. GLEEVEC [Suspect]
     Dosage: UNSPECIFIED
     Dates: start: 20061214, end: 20070103
  3. GLEEVEC [Suspect]
     Dosage: 300 MG, QD
     Route: 048
     Dates: start: 20070104
  4. NEOBLOC [Concomitant]
     Indication: ARRHYTHMIA
  5. PERINDOPRIL ERBUMINE [Concomitant]
  6. FORTIFER [Concomitant]
     Indication: ANAEMIA
  7. GLUCOVANCE [Concomitant]
     Indication: DIABETES MELLITUS

REACTIONS (7)
  - ALBUMINURIA [None]
  - ANAEMIA [None]
  - BLOOD CREATININE INCREASED [None]
  - HAEMATURIA [None]
  - MELAENA [None]
  - NEPHROLITHIASIS [None]
  - UPPER GASTROINTESTINAL HAEMORRHAGE [None]
